FAERS Safety Report 4340863-1 (Version None)
Quarter: 2004Q2

REPORT INFORMATION
  Report Type: 
  Country: None (occurrence: None)
  Receive Date: 20040414
  Receipt Date: 19960709
  Transmission Date: 20050107
  Serious: Yes (Death, Life-Threatening, Hospitalization)
  Sender: FDA-Public Use
  Company Number: WAES 96090102

PATIENT
  Age: 15 Day
  Sex: Male

DRUGS (4)
  1. INDOCIN [Suspect]
     Indication: PATENT DUCTUS ARTERIOSUS
     Dosage: UNK; IV
     Route: 042
     Dates: start: 19960508, end: 19960510
  2. AMPICILLIN/CLOXACILLIN NA [Concomitant]
  3. DOPAMINE HCL [Concomitant]
  4. LIDOCAINE 1% [Concomitant]

REACTIONS (2)
  - OLIGURIA [None]
  - SEPTIC SHOCK [None]
